FAERS Safety Report 5676647-1 (Version None)
Quarter: 2008Q1

REPORT INFORMATION
  Report Type: 
  Country: None (occurrence: None)
  Receive Date: 20080324
  Receipt Date: 20080310
  Transmission Date: 20080703
  Serious: Yes (Life-Threatening, Hospitalization)
  Sender: FDA-Public Use
  Company Number: FR-BAYER-200717158GPV

PATIENT
  Age: 37 Year
  Sex: Female
  Weight: 62 kg

DRUGS (1)
  1. MIRENA [Suspect]
     Indication: CONTRACEPTION
     Dosage: TOTAL DAILY DOSE: 20 ?G
     Route: 015
     Dates: start: 20060922, end: 20071119

REACTIONS (7)
  - ABDOMINAL PAIN [None]
  - ABDOMINAL RIGIDITY [None]
  - ECTOPIC PREGNANCY WITH INTRAUTERINE DEVICE [None]
  - PELVIC PAIN [None]
  - PERITONEAL HAEMORRHAGE [None]
  - SHOCK HAEMORRHAGIC [None]
  - SYNCOPE [None]
